FAERS Safety Report 21234511 (Version 1)
Quarter: 2022Q3

REPORT INFORMATION
  Report Type: Spontaneous
  Country: US (occurrence: None)
  Receive Date: 20220820
  Receipt Date: 20220820
  Transmission Date: 20221027
  Serious: No
  Sender: FDA-Public Use
  Company Number: 2022A280269

PATIENT
  Sex: Female

DRUGS (1)
  1. SYMBICORT [Suspect]
     Active Substance: BUDESONIDE\FORMOTEROL FUMARATE DIHYDRATE
     Indication: Asthma
     Dosage: 120 INHALATION INHALER, EVERY DAY80.0UG UNKNOWN
     Route: 055
     Dates: start: 2010

REACTIONS (8)
  - Dyspnoea [Unknown]
  - Asthma [Unknown]
  - Product dose omission issue [Unknown]
  - Device delivery system issue [Unknown]
  - Expired product administered [Unknown]
  - Wrong technique in product usage process [Unknown]
  - Device use issue [Unknown]
  - Device information output issue [Unknown]
